FAERS Safety Report 10158662 (Version 1)
Quarter: 2014Q2

REPORT INFORMATION
  Report Type: Spontaneous
  Country: US (occurrence: US)
  Receive Date: 20140508
  Receipt Date: 20140508
  Transmission Date: 20141212
  Serious: No
  Sender: FDA-Public Use
  Company Number: US-BIOGENIDEC-2014BI039208

PATIENT
  Age: 43 Year
  Sex: Female

DRUGS (2)
  1. AVONEX [Suspect]
     Indication: MULTIPLE SCLEROSIS
     Route: 030
     Dates: start: 20020719
  2. AVONEX [Suspect]
     Indication: MULTIPLE SCLEROSIS
     Route: 030

REACTIONS (5)
  - Mass [Unknown]
  - Drug administered at inappropriate site [Recovered/Resolved]
  - Injection site haemorrhage [Recovered/Resolved]
  - Injection site bruising [Not Recovered/Not Resolved]
  - Injection site pain [Unknown]
